FAERS Safety Report 22354548 (Version 1)
Quarter: 2023Q2

REPORT INFORMATION
  Report Type: Spontaneous
  Country: US (occurrence: US)
  Receive Date: 20230523
  Receipt Date: 20230523
  Transmission Date: 20230721
  Serious: No
  Sender: FDA-Public Use
  Company Number: US-STERISCIENCE B.V.-2022M1049884

PATIENT
  Age: 32 Year
  Sex: Female

DRUGS (5)
  1. AMPICILLIN [Suspect]
     Active Substance: AMPICILLIN
     Dosage: UNK
  2. CEFTRIAXONE [Suspect]
     Active Substance: CEFTRIAXONE
     Dosage: ONE DOSE
  3. GENTAMICIN [Suspect]
     Active Substance: GENTAMICIN
     Dosage: UNK
  4. MISOPROSTOL [Suspect]
     Active Substance: MISOPROSTOL
     Dosage: UNK
  5. PITOCIN [Suspect]
     Active Substance: OXYTOCIN
     Dosage: UNK

REACTIONS (1)
  - Maternal exposure during delivery [None]
